FAERS Safety Report 19531278 (Version 2)
Quarter: 2022Q2

REPORT INFORMATION
  Report Type: Report from Study
  Country: PR (occurrence: PR)
  Receive Date: 20210714
  Receipt Date: 20220624
  Transmission Date: 20220720
  Serious: Yes (Other)
  Sender: FDA-Public Use
  Company Number: PR-ABBVIE-21K-131-3988670-00

PATIENT
  Age: 57 Year
  Sex: Female
  Weight: 68.100 kg

DRUGS (17)
  1. HUMIRA [Suspect]
     Active Substance: ADALIMUMAB
     Indication: Colitis ulcerative
     Route: 058
     Dates: start: 201809
  2. HUMIRA [Suspect]
     Active Substance: ADALIMUMAB
     Indication: Colitis ulcerative
     Route: 058
     Dates: start: 201809, end: 2021
  3. HUMIRA [Suspect]
     Active Substance: ADALIMUMAB
     Route: 058
     Dates: start: 2021
  4. ASACOL [Concomitant]
     Active Substance: MESALAMINE
     Indication: Colitis ulcerative
     Route: 048
     Dates: start: 2013
  5. AMLODIPINE [Concomitant]
     Active Substance: AMLODIPINE BESYLATE
     Indication: Hypertension
     Route: 048
     Dates: start: 2019
  6. ROSUVASTATIN [Concomitant]
     Active Substance: ROSUVASTATIN
     Indication: Blood cholesterol
     Route: 048
     Dates: start: 2018
  7. VITAMIN C [Concomitant]
     Active Substance: ASCORBIC ACID
     Indication: Supplementation therapy
     Route: 048
  8. VITAMIN D3 [Concomitant]
     Active Substance: CHOLECALCIFEROL
     Indication: Supplementation therapy
     Route: 048
  9. KLONOPIN [Concomitant]
     Active Substance: CLONAZEPAM
     Indication: Anxiety
     Route: 048
     Dates: start: 2013
  10. KLONOPIN [Concomitant]
     Active Substance: CLONAZEPAM
     Indication: Insomnia
  11. CALCIUM [Concomitant]
     Active Substance: CALCIUM
     Indication: Supplementation therapy
     Route: 048
  12. TOZINAMERAN [Concomitant]
     Active Substance: TOZINAMERAN
     Indication: COVID-19 immunisation
     Dosage: FIRST DOSE.
     Route: 030
     Dates: start: 20210401, end: 20210401
  13. TOZINAMERAN [Concomitant]
     Active Substance: TOZINAMERAN
     Dosage: SECOND DOSE.
     Route: 030
     Dates: start: 20210424, end: 20210424
  14. TOZINAMERAN [Concomitant]
     Active Substance: TOZINAMERAN
     Dosage: FIRST BOOSTER DOSE.
     Route: 030
     Dates: start: 20211025, end: 20211025
  15. TOZINAMERAN [Concomitant]
     Active Substance: TOZINAMERAN
     Dosage: SECOND BOOSTER DOSE.
     Route: 030
  16. OMEGA 3 [Concomitant]
     Active Substance: CAPSAICIN
     Indication: Vitamin supplementation
     Route: 048
     Dates: start: 202202
  17. VITAMIN D [Concomitant]
     Active Substance: VITAMIN D NOS
     Indication: Vitamin supplementation
     Route: 048
     Dates: start: 202110

REACTIONS (5)
  - Plantar fasciitis [Recovering/Resolving]
  - Weight increased [Not Recovered/Not Resolved]
  - Diarrhoea [Recovering/Resolving]
  - Adverse food reaction [Unknown]
  - Pain in extremity [Recovering/Resolving]

NARRATIVE: CASE EVENT DATE: 20200101
